FAERS Safety Report 4884139-2 (Version None)
Quarter: 2006Q1

REPORT INFORMATION
  Report Type: 
  Country: None (occurrence: None)
  Receive Date: 20060118
  Receipt Date: 20051005
  Transmission Date: 20060701
  Serious: Yes (Death)
  Sender: FDA-Public Use
  Company Number: US-MERCK-0510USA04346

PATIENT
  Age: 71 Year
  Sex: Male
  Weight: 159 kg

DRUGS (9)
  1. VIOXX [Suspect]
     Route: 048
     Dates: start: 20040518, end: 20040901
  2. CARTIA XT [Concomitant]
     Route: 065
  3. ZESTRIL [Concomitant]
     Route: 065
  4. PROVAS (VALSARTAN) [Concomitant]
     Route: 065
  5. HYDROCHLOROTHIAZIDE [Concomitant]
     Route: 065
  6. SYNTHROID [Concomitant]
     Route: 065
  7. PROZAC [Concomitant]
     Route: 065
  8. ZOCOR [Concomitant]
     Route: 065
  9. HALCION [Concomitant]
     Route: 065

REACTIONS (4)
  - ARTERIOSCLEROSIS [None]
  - CARDIOVASCULAR DISORDER [None]
  - DIABETES MELLITUS [None]
  - HYPERTENSIVE HEART DISEASE [None]
